FAERS Safety Report 4726105-3 (Version None)
Quarter: 2005Q3

REPORT INFORMATION
  Report Type: 
  Country: None (occurrence: None)
  Receive Date: 20050725
  Receipt Date: 20050713
  Transmission Date: 20060218
  Serious: Yes (Hospitalization)
  Sender: FDA-Public Use
  Company Number: 2005087937

PATIENT
  Age: 16 Month
  Sex: Male
  Weight: 12 kg

DRUGS (1)
  1. ZIPRASIDONE (CAPS) (ZIPRASIDONE) [Suspect]
     Indication: ILL-DEFINED DISORDER
     Dosage: (40 MG, 1 IN 1 TOTAL), ORAL
     Route: 048
     Dates: start: 20040605, end: 20050605

REACTIONS (9)
  - ACCIDENTAL DRUG INTAKE BY CHILD [None]
  - DECREASED ACTIVITY [None]
  - ELECTROCARDIOGRAM QT CORRECTED INTERVAL PROLONGED [None]
  - GLASGOW COMA SCALE ABNORMAL [None]
  - IRRITABILITY [None]
  - MIOSIS [None]
  - NEUROLOGICAL SYMPTOM [None]
  - PUPIL FIXED [None]
  - PYREXIA [None]
